FAERS Safety Report 19239991 (Version 1)
Quarter: 2021Q2

REPORT INFORMATION
  Report Type: Spontaneous
  Country: US (occurrence: US)
  Receive Date: 20210511
  Receipt Date: 20210511
  Transmission Date: 20210717
  Serious: Yes (Other)
  Sender: FDA-Public Use
  Company Number: US-LUPIN PHARMACEUTICALS INC.-2021-06611

PATIENT
  Age: 58 Year
  Sex: Female

DRUGS (3)
  1. LERONLIMAB. [Suspect]
     Active Substance: LERONLIMAB
     Dosage: UNK
     Route: 058
     Dates: start: 20200424
  2. HYDROXYCHLOROQUINE [Suspect]
     Active Substance: HYDROXYCHLOROQUINE
     Indication: COVID-19
     Dosage: 200 MILLIGRAM, BID
     Route: 048
     Dates: start: 202004
  3. LERONLIMAB. [Suspect]
     Active Substance: LERONLIMAB
     Indication: COVID-19
     Dosage: UNK
     Route: 058
     Dates: start: 20200417

REACTIONS (1)
  - Off label use [Unknown]

NARRATIVE: CASE EVENT DATE: 202004
